FAERS Safety Report 8502371-3 (Version None)
Quarter: 2012Q3

REPORT INFORMATION
  Report Type: 
  Country: None (occurrence: None)
  Receive Date: 20120711
  Receipt Date: 20120705
  Transmission Date: 20120928
  Serious: Yes (Hospitalization)
  Sender: FDA-Public Use
  Company Number: US-BAYER-2010-001551

PATIENT
  Age: 18 Year
  Sex: Female
  Weight: 83.9 kg

DRUGS (2)
  1. YASMIN [Suspect]
  2. YAZ [Suspect]
     Indication: CONTRACEPTION
     Dosage: UNK
     Dates: start: 20070327, end: 20090401

REACTIONS (3)
  - COLITIS [None]
  - CHOLECYSTITIS [None]
  - GALLBLADDER DISORDER [None]
